FAERS Safety Report 24542459 (Version 1)
Quarter: 2024Q4

REPORT INFORMATION
  Report Type: Report from Study
  Country: EG (occurrence: EG)
  Receive Date: 20241024
  Receipt Date: 20241024
  Transmission Date: 20250114
  Serious: Yes (Hospitalization, Disabling)
  Sender: ABBVIE
  Company Number: EG-ABBVIE-5969418

PATIENT
  Age: 51 Year
  Sex: Female

DRUGS (2)
  1. RINVOQ [Suspect]
     Active Substance: UPADACITINIB
     Indication: Ankylosing spondylitis
     Dosage: FIRST ADMIN DATE: 2024, FORM STRENGTH 15 MILLIGRAMS, 1 TABLET
     Route: 048
     Dates: end: 20241004
  2. RINVOQ [Suspect]
     Active Substance: UPADACITINIB
     Indication: Ankylosing spondylitis
     Dosage: LAST ADMIN DATE: 2024, FORM STRENGTH 15 MILLIGRAMS, 1 TABLET
     Route: 048
     Dates: start: 20240902

REACTIONS (5)
  - Neuralgia [Unknown]
  - Drug ineffective [Recovered/Resolved]
  - Pain in extremity [Unknown]
  - Discomfort [Recovered/Resolved]
  - Intervertebral disc protrusion [Unknown]

NARRATIVE: CASE EVENT DATE: 20240901
